FAERS Safety Report 4488638-7 (Version None)
Quarter: 2004Q4

REPORT INFORMATION
  Report Type: 
  Country: None (occurrence: None)
  Receive Date: 20041025
  Receipt Date: 20041012
  Transmission Date: 20050328
  Serious: Yes (Death)
  Sender: FDA-Public Use
  Company Number: 2004238408AU

PATIENT
  Age: 60 Year
  Sex: Female
  Weight: 70 kg

DRUGS (15)
  1. IDARUBICIN HCL [Suspect]
     Dosage: 16 MG, QD, IV
     Route: 042
     Dates: start: 20040906, end: 20040908
  2. ETOPOSIDE [Suspect]
     Dosage: 135 MG, QD, IV
     Route: 042
     Dates: start: 20040907, end: 20040913
  3. CYTARABINE [Suspect]
     Dosage: 5.5 G, BID, IV
     Route: 042
     Dates: start: 20040907, end: 20040914
  4. COMPARATOR-FILGRASTIM (FILGRASTIM) [Suspect]
     Indication: PROPHYLAXIS
     Dosage: 300 UG, QD, SUBCUTANEOUS
     Route: 058
     Dates: start: 20040914, end: 20041008
  5. MAXOLON [Concomitant]
  6. MORPHINE [Concomitant]
  7. NILSTAT [Concomitant]
  8. SODIUM BICARBONATE [Concomitant]
  9. CERNEVIT-12 [Concomitant]
  10. ACETAMINOPHEN [Concomitant]
  11. PHYTONADIONE [Concomitant]
  12. CEFEPIME (CEFEPIME) [Concomitant]
  13. TEICOPLANIN [Concomitant]
  14. ZANTAC [Concomitant]
  15. CIPROFLOXACIN [Concomitant]

REACTIONS (6)
  - BONE MARROW DEPRESSION [None]
  - ENTEROCOCCAL INFECTION [None]
  - NEUTROPENIA [None]
  - PATHOGEN RESISTANCE [None]
  - SEPTIC SHOCK [None]
  - TACHYCARDIA [None]
